FAERS Safety Report 19751895 (Version 3)
Quarter: 2021Q3

REPORT INFORMATION
  Report Type: Report from Study
  Country: CA (occurrence: CA)
  Receive Date: 20210826
  Receipt Date: 20210927
  Transmission Date: 20211014
  Serious: Yes (Hospitalization)
  Sender: FDA-Public Use
  Company Number: CA-ROCHE-2889547

PATIENT
  Age: 49 Year
  Sex: Male
  Weight: 79.5 kg

DRUGS (15)
  1. ATEZOLIZUMAB. [Suspect]
     Active Substance: ATEZOLIZUMAB
     Indication: METASTATIC NEOPLASM
     Dosage: ON 27/JUL/2021, THE PATIENT RECEIVED THE MOST RECENT DOSE OF STUDY DRUG (600 MG) PRIOR TO AE.
     Route: 042
     Dates: start: 20210727
  2. CLAVULIN [Concomitant]
     Active Substance: AMOXICILLIN\CLAVULANATE POTASSIUM
     Indication: TOOTH INFECTION
     Route: 048
     Dates: start: 20210809, end: 20210810
  3. ENOXAPARIN [Concomitant]
     Active Substance: ENOXAPARIN
     Route: 058
     Dates: start: 20210811, end: 20210811
  4. HYDROMORPHONE [Concomitant]
     Active Substance: HYDROMORPHONE
     Indication: TOOTHACHE
     Route: 048
     Dates: start: 20210811, end: 20210813
  5. CLINDAMYCIN. [Concomitant]
     Active Substance: CLINDAMYCIN
     Indication: TOOTH INFECTION
     Route: 048
     Dates: start: 20210812, end: 20210817
  6. IBUPROFEN. [Concomitant]
     Active Substance: IBUPROFEN
     Indication: TOOTHACHE
     Route: 048
     Dates: start: 20210809
  7. TYLENOL EXTRA STRENGTH [Concomitant]
     Active Substance: ACETAMINOPHEN
     Indication: MUSCULOSKELETAL CHEST PAIN
     Route: 048
     Dates: start: 20210625
  8. TIRAGOLUMAB. [Suspect]
     Active Substance: TIRAGOLUMAB
     Indication: METASTATIC NEOPLASM
     Dosage: ON 27/JUL/2021, THE PATIENT RECEIVED THE MOST RECENT DOSE OF STUDY DRUG (1200 MG) PRIOR TO AE
     Route: 042
     Dates: start: 20210727
  9. CISPLATIN. [Suspect]
     Active Substance: CISPLATIN
     Indication: METASTATIC NEOPLASM
     Dosage: ON 27/JUL/2021, THE PATIENT RECEIVED THE MOST RECENT DOSE OF STUDY DRUG (150.7MG) PRIOR TO AE.
     Route: 042
     Dates: start: 20210727
  10. ADVIL [Concomitant]
     Active Substance: IBUPROFEN
     Indication: MUSCULOSKELETAL CHEST PAIN
     Route: 048
     Dates: start: 20210625
  11. CHLORHEXIDINE GLUCONATE. [Concomitant]
     Active Substance: CHLORHEXIDINE GLUCONATE
     Indication: TOOTH INFECTION
     Route: 048
     Dates: start: 20210812
  12. DICLOFENAC [Concomitant]
     Active Substance: DICLOFENAC
     Indication: MUSCULOSKELETAL CHEST PAIN
     Route: 048
     Dates: start: 20210625
  13. ETOPOSIDE. [Suspect]
     Active Substance: ETOPOSIDE
     Indication: METASTATIC NEOPLASM
     Dosage: ON 27/JUL/2021, THE PATIENT RECEIVED THE MOST RECENT DOSE OF STUDY DRUG (201 MG) PRIOR TO AE.
     Route: 042
     Dates: start: 20210727
  14. PIPERACILLIN AND TAZOBACTAM [Concomitant]
     Active Substance: PIPERACILLIN SODIUM\TAZOBACTAM SODIUM
     Indication: TOOTH INFECTION
     Route: 048
     Dates: start: 20210810, end: 20210812
  15. CODEINE [Concomitant]
     Active Substance: CODEINE
     Indication: TOOTHACHE
     Route: 048
     Dates: start: 20210811, end: 20210812

REACTIONS (1)
  - Febrile neutropenia [Recovered/Resolved]

NARRATIVE: CASE EVENT DATE: 20210810
